FAERS Safety Report 17546368 (Version 2)
Quarter: 2020Q1

REPORT INFORMATION
  Report Type: Report from Study
  Country: None (occurrence: CA)
  Receive Date: 20200316
  Receipt Date: 20200320
  Transmission Date: 20200409
  Serious: Yes (Hospitalization)
  Sender: FDA-Public Use
  Company Number: CA-ABBVIE-20K-028-3265347-00

PATIENT
  Age: 88 Year
  Sex: Female

DRUGS (1)
  1. SKYRIZI [Suspect]
     Active Substance: RISANKIZUMAB-RZAA
     Indication: PSORIASIS
     Route: 058
     Dates: start: 20190530

REACTIONS (10)
  - C-reactive protein increased [Unknown]
  - Fatigue [Unknown]
  - Urinary tract infection [Recovered/Resolved]
  - Lethargy [Unknown]
  - Pain [Unknown]
  - Arthritis [Unknown]
  - Delirium [Unknown]
  - Fall [Recovered/Resolved]
  - Hospitalisation [Unknown]
  - Hallucination [Unknown]

NARRATIVE: CASE EVENT DATE: 202001
